FAERS Safety Report 6644870-5 (Version None)
Quarter: 2010Q1

REPORT INFORMATION
  Report Type: 
  Country: None (occurrence: None)
  Receive Date: 20100317
  Receipt Date: 20100303
  Transmission Date: 20100710
  Serious: Yes (Hospitalization)
  Sender: FDA-Public Use
  Company Number: 2010AP000353

PATIENT
  Age: 36 Year
  Sex: Male

DRUGS (2)
  1. SOTALOL HCL [Suspect]
  2. OLANZAPINE [Suspect]

REACTIONS (9)
  - ALCOHOL USE [None]
  - BLOOD PRESSURE DECREASED [None]
  - DYSARTHRIA [None]
  - ELECTROCARDIOGRAM QRS COMPLEX PROLONGED [None]
  - HEART RATE DECREASED [None]
  - MENTAL STATUS CHANGES [None]
  - MULTIPLE DRUG OVERDOSE [None]
  - SOMNOLENCE [None]
  - TORSADE DE POINTES [None]
